FAERS Safety Report 6382470-5 (Version None)
Quarter: 2009Q3

REPORT INFORMATION
  Report Type: 
  Country: None (occurrence: None)
  Receive Date: 20090930
  Receipt Date: 20090921
  Transmission Date: 20100115
  Serious: Yes (Death, Hospitalization, Other)
  Sender: FDA-Public Use
  Company Number: BR-ABBOTT-09P-020-0595987-00

PATIENT
  Sex: Female
  Weight: 45 kg

DRUGS (7)
  1. HUMIRA [Suspect]
     Indication: RHEUMATOID ARTHRITIS
     Route: 058
  2. UNKNOWN THERAPIES [Concomitant]
     Indication: RHEUMATOID ARTHRITIS
  3. UNKNOWN THERAPIES [Concomitant]
     Indication: OSTEOARTHRITIS
  4. UNKNOWN THERAPIES [Concomitant]
     Indication: HYPERTENSION
  5. UNKNOWN THERAPIES [Concomitant]
     Indication: DIABETES MELLITUS
  6. METFORMIN HYDROCHLORIDE [Concomitant]
     Indication: DIABETES MELLITUS
     Route: 048
  7. DIOVAN HCT [Concomitant]
     Indication: HYPERTENSION
     Dosage: 1 - 160MG/12.5MG TAB EVERY 24 HOURS

REACTIONS (8)
  - ALTERED STATE OF CONSCIOUSNESS [None]
  - CEREBROVASCULAR ACCIDENT [None]
  - GASTRIC VARICES [None]
  - GASTRIC VARICES HAEMORRHAGE [None]
  - HAEMATEMESIS [None]
  - HAEMATOCHEZIA [None]
  - HAEMORRHAGE [None]
  - NAUSEA [None]
